FAERS Safety Report 8445344-1 (Version None)
Quarter: 2012Q2

REPORT INFORMATION
  Report Type: 
  Country: None (occurrence: None)
  Receive Date: 20120618
  Receipt Date: 20110919
  Transmission Date: 20120825
  Serious: Yes (Other)
  Sender: FDA-Public Use
  Company Number: US-TEVA-2010002737

PATIENT
  Sex: Male

DRUGS (2)
  1. FENTORA [Suspect]
     Indication: GASTROINTESTINAL PAIN
     Route: 002
  2. FENTANYL CITRATE [Suspect]
     Indication: GASTROINTESTINAL PAIN
     Route: 002
     Dates: start: 20020101

REACTIONS (2)
  - DRUG PRESCRIBING ERROR [None]
  - TOOTH DISORDER [None]
